FAERS Safety Report 10014834 (Version 4)
Quarter: 2014Q2

REPORT INFORMATION
  Report Type: Spontaneous
  Country: JP (occurrence: JP)
  Receive Date: 20140317
  Receipt Date: 20140505
  Transmission Date: 20141212
  Serious: Yes (Hospitalization)
  Sender: FDA-Public Use
  Company Number: PHHY2014JP027261

PATIENT
  Age: 80 Year
  Sex: Female

DRUGS (4)
  1. SLOW K [Suspect]
     Indication: HYPOKALAEMIA
     Dosage: 1800 MG, DAILY
     Route: 048
     Dates: start: 20140224, end: 20140228
  2. ULCERLMIN [Concomitant]
     Dosage: UNK UKN, UNK
     Route: 048
  3. MAGNESIUM OXIDE [Concomitant]
     Dosage: UNK UKN, UNK
     Route: 048
  4. MIYA BM [Concomitant]
     Dosage: UNK UKN, UNK
     Route: 048

REACTIONS (4)
  - Large intestinal obstruction [Recovered/Resolved]
  - Condition aggravated [Recovered/Resolved]
  - Foreign body [Recovered/Resolved with Sequelae]
  - Intestinal obstruction [Recovered/Resolved]
